FAERS Safety Report 13632945 (Version 1)
Quarter: 2017Q2

REPORT INFORMATION
  Report Type: Report from Study
  Country: None (occurrence: CA)
  Receive Date: 20170609
  Receipt Date: 20170609
  Transmission Date: 20170830
  Serious: Yes (Hospitalization)
  Sender: FDA-Public Use
  Company Number: CA-ABBVIE-17P-028-1991500-00

PATIENT
  Sex: Female

DRUGS (3)
  1. SANDOZ CLARITHROMYCINE [Suspect]
     Active Substance: CLARITHROMYCIN
     Indication: EAR INFECTION
     Route: 065
     Dates: start: 201705
  2. HUMIRA [Suspect]
     Active Substance: ADALIMUMAB
     Indication: ANKYLOSING SPONDYLITIS
     Route: 058
     Dates: start: 20140129, end: 201704
  3. HUMIRA [Suspect]
     Active Substance: ADALIMUMAB
     Route: 058
     Dates: start: 20170503, end: 20170503

REACTIONS (11)
  - Drug level decreased [Not Recovered/Not Resolved]
  - Nasal discharge discolouration [Not Recovered/Not Resolved]
  - Colitis [Not Recovered/Not Resolved]
  - Pyrexia [Not Recovered/Not Resolved]
  - Rhinorrhoea [Not Recovered/Not Resolved]
  - Ear infection [Not Recovered/Not Resolved]
  - Lung infection [Not Recovered/Not Resolved]
  - Drug ineffective [Not Recovered/Not Resolved]
  - Bronchitis [Not Recovered/Not Resolved]
  - Middle ear effusion [Not Recovered/Not Resolved]
  - Ear pain [Not Recovered/Not Resolved]

NARRATIVE: CASE EVENT DATE: 2017
